FAERS Safety Report 8249381-1 (Version None)
Quarter: 2012Q2

REPORT INFORMATION
  Report Type: 
  Country: None (occurrence: None)
  Receive Date: 20120402
  Receipt Date: 20120327
  Transmission Date: 20120825
  Serious: Yes (Other)
  Sender: FDA-Public Use
  Company Number: US-AMGEN-USASP2011034343

PATIENT
  Age: 34 Year
  Sex: Female

DRUGS (3)
  1. PRENATAL VITAMINS                  /01549301/ [Concomitant]
     Dosage: UNK UNK, QD
     Route: 048
  2. ENBREL [Suspect]
     Indication: JUVENILE ARTHRITIS
     Dosage: UNK
     Route: 058
     Dates: end: 20100501
  3. FOLIC ACID [Concomitant]
     Dosage: UNK
     Route: 048

REACTIONS (2)
  - RHEUMATOID ARTHRITIS [None]
  - GESTATIONAL HYPERTENSION [None]
